FAERS Safety Report 10022652 (Version 2)
Quarter: 2014Q1

REPORT INFORMATION
  Report Type: Spontaneous
  Country: ES (occurrence: ES)
  Receive Date: 20140319
  Receipt Date: 20140331
  Transmission Date: 20141002
  Serious: Yes (Other)
  Sender: FDA-Public Use
  Company Number: ES-VERTEX PHARMACEUTICALS INC-2014-001340

PATIENT
  Age: 48 Year
  Sex: Female
  Weight: 58 kg

DRUGS (8)
  1. INCIVO [Suspect]
     Indication: HEPATITIS C
     Dosage: STOPPED AT TREATMENT WEEK 8
     Route: 065
     Dates: start: 20140107, end: 20140228
  2. PEG INTERFERON [Concomitant]
     Indication: HEPATITIS C
     Route: 058
     Dates: start: 20140107, end: 20140228
  3. RIBAVIRIN [Concomitant]
     Indication: HEPATITIS C
     Dosage: 1000 MG, BID
     Route: 048
  4. OMEPRAZOLE [Concomitant]
     Indication: DYSPEPSIA
     Dosage: 20 MG, PRN
     Route: 048
     Dates: start: 20140217, end: 20140227
  5. ONDANSETRON [Concomitant]
     Indication: NAUSEA
     Dosage: 4 MG, PRN
     Route: 048
     Dates: start: 20140120, end: 20140217
  6. DEXCHLORPHENIRAMINE [Concomitant]
     Indication: PRURITUS
     Dosage: 2 KG, BID
     Route: 048
     Dates: start: 20140110, end: 20140113
  7. CLOBETASONE [Concomitant]
     Indication: RASH
     Dosage: 0.05 %, BID
     Route: 061
     Dates: start: 20140110, end: 20140113
  8. HYDROCORTISONE [Concomitant]
     Indication: ANAL PRURITUS
     Dosage: 1 DF, BID
     Route: 061
     Dates: start: 20140207, end: 20140217

REACTIONS (5)
  - Transaminases increased [Not Recovered/Not Resolved]
  - Cholestasis [Not Recovered/Not Resolved]
  - Hyperbilirubinaemia [Not Recovered/Not Resolved]
  - Rash [Recovered/Resolved]
  - Nausea [Recovered/Resolved]
